FAERS Safety Report 16456297 (Version 2)
Quarter: 2019Q3

REPORT INFORMATION
  Report Type: Spontaneous
  Country: US (occurrence: US)
  Receive Date: 20190620
  Receipt Date: 20190719
  Transmission Date: 20191004
  Serious: No
  Sender: FDA-Public Use
  Company Number: US-009507513-1905USA010783

PATIENT
  Age: 90 Year
  Sex: Male

DRUGS (11)
  1. BELSOMRA [Suspect]
     Active Substance: SUVOREXANT
     Indication: INSOMNIA
     Dosage: ONCE A DAY, PILL
     Route: 048
     Dates: start: 201904, end: 2019
  2. TERAZOSIN [Concomitant]
     Active Substance: TERAZOSIN HYDROCHLORIDE
  3. TRAZODONE HYDROCHLORIDE. [Concomitant]
     Active Substance: TRAZODONE HYDROCHLORIDE
  4. FINASTERIDE. [Concomitant]
     Active Substance: FINASTERIDE
  5. GARLIC. [Concomitant]
     Active Substance: GARLIC
  6. MELATONIN [Concomitant]
     Active Substance: MELATONIN
  7. LOVASTATIN. [Concomitant]
     Active Substance: LOVASTATIN
  8. LISINOPRIL. [Concomitant]
     Active Substance: LISINOPRIL
  9. BELSOMRA [Suspect]
     Active Substance: SUVOREXANT
     Dosage: ONCE A DAY, PILL
     Route: 048
     Dates: start: 2019
  10. ECHINACEA (UNSPECIFIED) [Concomitant]
  11. NIFEDIPINE. [Concomitant]
     Active Substance: NIFEDIPINE

REACTIONS (2)
  - Insomnia [Not Recovered/Not Resolved]
  - Drug ineffective [Not Recovered/Not Resolved]

NARRATIVE: CASE EVENT DATE: 20190515
